FAERS Safety Report 5089580-3 (Version None)
Quarter: 2006Q3

REPORT INFORMATION
  Report Type: 
  Country: None (occurrence: None)
  Receive Date: 20060822
  Receipt Date: 20060814
  Transmission Date: 20061208
  Serious: Yes (Hospitalization, Other)
  Sender: FDA-Public Use
  Company Number: HQWYE540131JUL06

PATIENT
  Age: 33 Year
  Sex: Male
  Weight: 42 kg

DRUGS (2)
  1. TYGACIL [Suspect]
     Indication: ABDOMINAL SEPSIS
     Dosage: 50 MG 1X PER 12 HR, INTRAVENOUS
     Route: 042
     Dates: start: 20060712, end: 20060802
  2. TYGACIL [Suspect]
     Indication: PULMONARY SEPSIS
     Dosage: 50 MG 1X PER 12 HR, INTRAVENOUS
     Route: 042
     Dates: start: 20060712, end: 20060802

REACTIONS (2)
  - LEUKOCYTOSIS [None]
  - PNEUMONIA STAPHYLOCOCCAL [None]
